FAERS Safety Report 9286115 (Version 3)
Quarter: 2013Q2

REPORT INFORMATION
  Report Type: Spontaneous
  Country: US (occurrence: US)
  Receive Date: 20130513
  Receipt Date: 20130619
  Transmission Date: 20140414
  Serious: Yes (Other)
  Sender: FDA-Public Use
  Company Number: PHEH2013US010095

PATIENT
  Sex: Female
  Weight: 113.38 kg

DRUGS (13)
  1. NITROFURANTOIN [Concomitant]
     Dosage: 100 MG, QD
     Route: 048
  2. GABAPENTIN [Concomitant]
     Dosage: 600 MG, ONE EVERY MORNING AND TWO TABLETS AT BEDTIME
     Route: 048
  3. MULTIPLE VITAMINS [Concomitant]
     Route: 048
  4. VITAMIN D3 [Concomitant]
     Dosage: 1000 IU, QD
     Route: 048
  5. EPIPEN [Concomitant]
     Dosage: 0.3 MG, PRN
  6. LEXAPRO [Concomitant]
     Indication: DEPRESSION
     Dosage: 20 MG, QD
     Route: 048
  7. IRON DEXTRAN [Concomitant]
  8. QUETIAPINE [Concomitant]
     Dosage: 25 MG, QD
     Route: 048
  9. GALANTAMINE [Concomitant]
     Dosage: 12 MG, QD
     Route: 048
  10. CIPROFLOXACIN [Concomitant]
     Dosage: 500 MG, BID
     Route: 048
  11. GILENYA [Suspect]
     Indication: MULTIPLE SCLEROSIS
     Dosage: 0.5 MG, QD
     Route: 048
     Dates: start: 201205, end: 20130410
  12. LITHIUM [Concomitant]
     Indication: DEPRESSION
     Dosage: 450 MG, QD
     Route: 048
  13. LITHIUM [Concomitant]
     Dosage: 300 MG, QD
     Route: 048

REACTIONS (23)
  - Encephalopathy [Unknown]
  - Red blood cell count decreased [Unknown]
  - Haematocrit decreased [Unknown]
  - Blood alkaline phosphatase increased [Unknown]
  - Red cell distribution width increased [Unknown]
  - Monocyte count increased [Unknown]
  - Eosinophil count increased [Unknown]
  - Vitamin B12 increased [Unknown]
  - Vitamin D decreased [Unknown]
  - Tenderness [Unknown]
  - Neck pain [Unknown]
  - Dysstasia [Unknown]
  - Mean cell haemoglobin increased [Unknown]
  - White blood cell count increased [Unknown]
  - Neutrophil count increased [Unknown]
  - Muscular weakness [Not Recovered/Not Resolved]
  - Oedema peripheral [Unknown]
  - Rash [Unknown]
  - Diarrhoea [Unknown]
  - Aspartate aminotransferase increased [Unknown]
  - Alanine aminotransferase increased [Unknown]
  - Back pain [Unknown]
  - Non-Hodgkin^s lymphoma stage II [Unknown]
